FAERS Safety Report 5908285-7 (Version None)
Quarter: 2008Q4

REPORT INFORMATION
  Report Type: 
  Country: None (occurrence: None)
  Receive Date: 20081002
  Receipt Date: 20081002
  Transmission Date: 20090506
  Serious: Yes (Life-Threatening, Hospitalization, Disabling, Other)
  Sender: FDA-Public Use
  Company Number: None

PATIENT
  Age: 38 Year
  Sex: Female
  Weight: 104.3273 kg

DRUGS (2)
  1. PONDIMIN [Suspect]
     Indication: CATHETERISATION CARDIAC
  2. PONDIMIN [Suspect]
     Indication: ULTRASOUND SCAN

REACTIONS (1)
  - NO ADVERSE EVENT [None]
